FAERS Safety Report 9067964 (Version 1)
Quarter: 2013Q1

REPORT INFORMATION
  Report Type: Spontaneous
  Country: US (occurrence: US)
  Receive Date: 20130128
  Receipt Date: 20130128
  Transmission Date: 20140127
  Serious: Yes (Hospitalization, Other)
  Sender: FDA-Public Use
  Company Number: US-AMGEN-USASP2013004311

PATIENT
  Age: 53 Year
  Sex: Male

DRUGS (1)
  1. ENBREL [Suspect]
     Indication: RHEUMATOID ARTHRITIS
     Dosage: 50 MG, QWK
     Dates: start: 20120302, end: 201210

REACTIONS (5)
  - Ulcer [Recovered/Resolved]
  - Delusion [Not Recovered/Not Resolved]
  - Staphylococcal infection [Recovered/Resolved]
  - Wound [Not Recovered/Not Resolved]
  - Mobility decreased [Not Recovered/Not Resolved]
